FAERS Safety Report 18436203 (Version 1)
Quarter: 2020Q4

REPORT INFORMATION
  Report Type: Spontaneous
  Country: US (occurrence: US)
  Receive Date: 20201028
  Receipt Date: 20201028
  Transmission Date: 20210114
  Serious: No
  Sender: FDA-Public Use
  Company Number: None

PATIENT
  Age: 28 Year
  Sex: Female
  Weight: 56.25 kg

DRUGS (5)
  1. ESCITALOPRAM [Concomitant]
     Active Substance: ESCITALOPRAM OXALATE
  2. SPIRONILACTONE [Concomitant]
  3. QUETIAPINE. [Concomitant]
     Active Substance: QUETIAPINE
  4. DEXTROAMPHET SACCHARAT, AMPHET ASPARTATE, DEXTROAMPHET SULFATE AND AMPHET SULFAT [Suspect]
     Active Substance: AMPHETAMINE ASPARTATE\AMPHETAMINE SULFATE\DEXTROAMPHETAMINE SACCHARATE\DEXTROAMPHETAMINE SULFATE
     Indication: ATTENTION DEFICIT HYPERACTIVITY DISORDER
     Dosage: ?          QUANTITY:1 TABLET(S);?
     Route: 048
     Dates: start: 20200925, end: 20201002
  5. LAMICTAL [Concomitant]
     Active Substance: LAMOTRIGINE

REACTIONS (14)
  - Agitation [None]
  - Poor peripheral circulation [None]
  - Feeling abnormal [None]
  - Mood swings [None]
  - Headache [None]
  - Hyperhidrosis [None]
  - Mania [None]
  - Frustration tolerance decreased [None]
  - Vasoconstriction [None]
  - Crying [None]
  - Product substitution issue [None]
  - Cardiovascular disorder [None]
  - Anxiety [None]
  - Vomiting [None]

NARRATIVE: CASE EVENT DATE: 20200925
